FAERS Safety Report 6680264-4 (Version None)
Quarter: 2010Q2

REPORT INFORMATION
  Report Type: 
  Country: None (occurrence: None)
  Receive Date: 20100413
  Receipt Date: 20100407
  Transmission Date: 20101027
  Serious: Yes (Other)
  Sender: FDA-Public Use
  Company Number: BR-ABBOTT-10P-020-0624376-00

PATIENT
  Sex: Female
  Weight: 74 kg

DRUGS (9)
  1. HUMIRA [Suspect]
     Indication: RHEUMATOID ARTHRITIS
     Route: 058
     Dates: end: 20091201
  2. HUMIRA [Suspect]
     Route: 058
  3. NIFEDIPINE [Concomitant]
     Indication: HYPERTENSION
     Route: 048
  4. LOSARTAN POTASSIUM [Concomitant]
     Indication: HYPERTENSION
     Route: 048
  5. PREDNISOLONE [Concomitant]
     Indication: RHEUMATOID ARTHRITIS
     Route: 048
  6. METHOTREXATE [Concomitant]
     Indication: RHEUMATOID ARTHRITIS
     Route: 048
  7. THIAMINE [Concomitant]
     Indication: VARICOSE VEIN
     Route: 048
  8. RANITIDINE HCL [Concomitant]
     Indication: PROPHYLAXIS AGAINST GASTROINTESTINAL ULCER
     Route: 048
  9. AMITRIPTYLINE HCL [Concomitant]
     Indication: SLEEP DISORDER THERAPY
     Route: 048

REACTIONS (4)
  - BLOOD CHOLESTEROL INCREASED [None]
  - BONE EROSION [None]
  - INFLUENZA [None]
  - LUNG INFECTION [None]
